FAERS Safety Report 4465308-2 (Version None)
Quarter: 2004Q4

REPORT INFORMATION
  Report Type: 
  Country: None (occurrence: None)
  Receive Date: 20041004
  Receipt Date: 20030605
  Transmission Date: 20050328
  Serious: Yes (Hospitalization, Disabling, Other)
  Sender: FDA-Public Use
  Company Number: US-MERCK-0306USA00640

PATIENT
  Age: 62 Year
  Sex: Female

DRUGS (15)
  1. XANAX [Concomitant]
     Route: 065
  2. ASPIRIN [Concomitant]
     Route: 065
  3. CIPRO [Concomitant]
     Route: 065
  4. PROPULSID [Concomitant]
     Route: 065
  5. PREMARIN [Concomitant]
     Route: 065
  6. LASIX [Concomitant]
     Route: 065
  7. MAXZIDE [Concomitant]
     Route: 065
     Dates: end: 20010124
  8. PREVACID [Concomitant]
     Route: 065
  9. CLARITIN-D [Concomitant]
     Route: 065
  10. NITROPATCH [Concomitant]
     Route: 065
  11. PRILOSEC [Concomitant]
     Route: 065
  12. VIOXX [Suspect]
     Indication: ARTHRITIS
     Route: 048
     Dates: start: 20010309
  13. VIOXX [Suspect]
     Route: 048
  14. VIOXX [Suspect]
     Route: 048
  15. DETROL [Concomitant]
     Route: 065

REACTIONS (35)
  - ABDOMINAL PAIN [None]
  - ABDOMINAL PAIN UPPER [None]
  - ADRENAL ADENOMA [None]
  - ADRENAL CYST [None]
  - ADVERSE EVENT [None]
  - ARTERIAL OCCLUSIVE DISEASE [None]
  - ARTHRALGIA [None]
  - BACK PAIN [None]
  - BLOOD TRIGLYCERIDES INCREASED [None]
  - CARDIAC FAILURE CONGESTIVE [None]
  - CARDIOMEGALY [None]
  - CELLULITIS [None]
  - CHEST PAIN [None]
  - CHOLECYSTITIS [None]
  - CHOLELITHIASIS [None]
  - DEPRESSION [None]
  - DILATATION ATRIAL [None]
  - DIZZINESS [None]
  - DYSPNOEA [None]
  - FLATULENCE [None]
  - GLUCOSE TOLERANCE IMPAIRED [None]
  - GOITRE [None]
  - HAEMORRHOIDS [None]
  - HEPATIC STEATOSIS [None]
  - INCONTINENCE [None]
  - MITRAL VALVE INCOMPETENCE [None]
  - MYOCARDIAL INFARCTION [None]
  - NASOPHARYNGITIS [None]
  - OSTEOARTHRITIS [None]
  - POLYTRAUMATISM [None]
  - PRODUCTIVE COUGH [None]
  - UMBILICAL HERNIA [None]
  - URINARY INCONTINENCE [None]
  - VAGINITIS [None]
  - VENTRICULAR HYPERTROPHY [None]
